FAERS Safety Report 7023035-1 (Version None)
Quarter: 2010Q3

REPORT INFORMATION
  Report Type: 
  Country: None (occurrence: None)
  Receive Date: 20100930
  Receipt Date: 20100923
  Transmission Date: 20110219
  Serious: Yes (Death, Hospitalization, Other)
  Sender: FDA-Public Use
  Company Number: GR-WYE-G06477410

PATIENT
  Age: 80 Year
  Sex: Male

DRUGS (7)
  1. TYGACIL [Suspect]
     Indication: DIABETIC FOOT
     Route: 042
     Dates: start: 20100624, end: 20100711
  2. TYGACIL [Suspect]
     Indication: FEMORAL ARTERY OCCLUSION
  3. NEOMYCIN [Concomitant]
  4. PANWARFIN [Concomitant]
  5. PANTOZOL CONTROL [Concomitant]
  6. LOFTYL [Concomitant]
  7. MIXTARD HUMAN 70/30 [Concomitant]

REACTIONS (5)
  - ALANINE AMINOTRANSFERASE INCREASED [None]
  - ASPARTATE AMINOTRANSFERASE INCREASED [None]
  - GAMMA-GLUTAMYLTRANSFERASE INCREASED [None]
  - HEPATITIS CHOLESTATIC [None]
  - JAUNDICE CHOLESTATIC [None]
